FAERS Safety Report 16003737 (Version 1)
Quarter: 2019Q1

REPORT INFORMATION
  Report Type: Spontaneous
  Country: FR (occurrence: FR)
  Receive Date: 20190226
  Receipt Date: 20190226
  Transmission Date: 20190418
  Serious: Yes (Death)
  Sender: FDA-Public Use
  Company Number: FR-ALVOGEN-2019-ALVOGEN-098590

PATIENT
  Age: 76 Year
  Sex: Male
  Weight: 95 kg

DRUGS (13)
  1. MYCOPHENOLATE MOFETIL. [Suspect]
     Active Substance: MYCOPHENOLATE MOFETIL
     Indication: MULTIPLE SCLEROSIS
     Route: 048
     Dates: start: 2010, end: 20190116
  2. CALCIFEDIOL [Suspect]
     Active Substance: CALCIFEDIOL
     Indication: PROPHYLAXIS
     Route: 048
     Dates: start: 2014, end: 20190116
  3. TAMSULOSIN HYDROCHLORIDE. [Suspect]
     Active Substance: TAMSULOSIN HYDROCHLORIDE
     Indication: PRODUCT USED FOR UNKNOWN INDICATION
     Route: 048
     Dates: start: 2009, end: 20190116
  4. FLUINDIONE [Suspect]
     Active Substance: FLUINDIONE
     Indication: ATRIAL FIBRILLATION
     Route: 048
     Dates: start: 2006, end: 20190116
  5. PARACETAMOL [Suspect]
     Active Substance: ACETAMINOPHEN
     Indication: BACK PAIN
     Route: 048
     Dates: end: 20190116
  6. PAROXETINE HYDROCHLORIDE. [Suspect]
     Active Substance: PAROXETINE HYDROCHLORIDE
     Indication: DEPRESSION
     Route: 048
     Dates: start: 2009, end: 20190116
  7. FAMPRIDINE [Suspect]
     Active Substance: DALFAMPRIDINE
     Indication: MULTIPLE SCLEROSIS
     Route: 048
     Dates: start: 2013, end: 20190116
  8. BACLOFEN. [Suspect]
     Active Substance: BACLOFEN
     Indication: MULTIPLE SCLEROSIS
     Route: 048
     Dates: end: 20190116
  9. MACROGOL [Suspect]
     Active Substance: POLYETHYLENE GLYCOLS
     Indication: CONSTIPATION
     Route: 048
     Dates: start: 2009, end: 20190116
  10. ATENOLOL. [Suspect]
     Active Substance: ATENOLOL
     Indication: ATRIAL FIBRILLATION
     Route: 048
     Dates: start: 2006, end: 20190116
  11. ADENOSINE/DEOXYRIBONUCLEIC ACID [Suspect]
     Active Substance: ADENOSINE PHOSPHATE\DEOXYRIBONUCLIEC ACID
     Indication: BACK PAIN
     Route: 048
     Dates: end: 20190116
  12. DICLOFENAC SODIUM. [Suspect]
     Active Substance: DICLOFENAC SODIUM
     Indication: BACK PAIN
     Route: 003
     Dates: end: 20190116
  13. COLECALCIFEROL [Suspect]
     Active Substance: CHOLECALCIFEROL
     Indication: VITAMIN D DEFICIENCY
     Route: 048
     Dates: end: 20190116

REACTIONS (3)
  - Intracranial pressure increased [Fatal]
  - Brain herniation [Fatal]
  - Subdural haematoma [Fatal]

NARRATIVE: CASE EVENT DATE: 20190116
